FAERS Safety Report 22118230 (Version 1)
Quarter: 2023Q1

REPORT INFORMATION
  Report Type: Spontaneous
  Country: US (occurrence: US)
  Receive Date: 20230321
  Receipt Date: 20230321
  Transmission Date: 20230418
  Serious: No
  Sender: FDA-Public Use
  Company Number: US-002147023-NVSC2023US062932

PATIENT
  Sex: Female

DRUGS (2)
  1. XIIDRA [Suspect]
     Active Substance: LIFITEGRAST
     Indication: Dry eye
     Dosage: UNK (DROPPERETTE)
     Route: 065
     Dates: start: 20220511
  2. XIIDRA [Suspect]
     Active Substance: LIFITEGRAST
     Dosage: UNK (DROPPERETTE)
     Route: 065
     Dates: start: 20220611, end: 20221111

REACTIONS (7)
  - Ocular hyperaemia [Unknown]
  - Rash [Not Recovered/Not Resolved]
  - Bladder disorder [Not Recovered/Not Resolved]
  - Hyperchlorhydria [Unknown]
  - Eye irritation [Unknown]
  - Eye pain [Unknown]
  - Swollen tongue [Unknown]
